FAERS Safety Report 7279886-1 (Version None)
Quarter: 2011Q1

REPORT INFORMATION
  Report Type: 
  Country: None (occurrence: None)
  Receive Date: 20110208
  Receipt Date: 20101227
  Transmission Date: 20110831
  Serious: Yes (Other)
  Sender: FDA-Public Use
  Company Number: US-BAYER-201015460NA

PATIENT
  Sex: Female

DRUGS (9)
  1. UNCODEABLE ^UNCLASSIFIABLE^ [Concomitant]
     Dosage: 100 MG, QD
  2. CONCERTA [Concomitant]
     Dosage: 54 MG, QD
  3. EFFEXOR XR [Concomitant]
     Dosage: 150 MG, QD
  4. LIPITOR [Concomitant]
     Dosage: 10 MG, QD
  5. WELLBUTRIN XL [Concomitant]
     Dosage: 300 MG, QD
  6. METFORMIN HCL [Concomitant]
     Dosage: 1000 MG, BID
  7. YASMIN [Suspect]
     Indication: PRODUCT USED FOR UNKNOWN INDICATION
     Route: 048
  8. UNCODEABLE ^UNCLASSIFIABLE^ [Concomitant]
     Dosage: UNK UNK, QD
  9. LEVOTHYROXINE SODIUM [Concomitant]
     Dosage: 0.125 MG, QD

REACTIONS (3)
  - CHOLECYSTITIS CHRONIC [None]
  - GALLBLADDER CHOLESTEROLOSIS [None]
  - CHOLELITHIASIS [None]
